FAERS Safety Report 13956478 (Version 1)
Quarter: 2017Q3

REPORT INFORMATION
  Report Type: Spontaneous
  Country: JP (occurrence: JP)
  Receive Date: 20170911
  Receipt Date: 20170911
  Transmission Date: 20171128
  Serious: Yes (Other)
  Sender: FDA-Public Use
  Company Number: JP-PFIZER INC-2017387393

PATIENT
  Age: 64 Year
  Sex: Male

DRUGS (2)
  1. SUNITINIB MALATE. [Suspect]
     Active Substance: SUNITINIB MALATE
     Indication: CLEAR CELL RENAL CELL CARCINOMA
     Dosage: 37.5 MG, DAILY 2 WEEKS FOLLOWED BY 1 WEEK OFF
  2. SUNITINIB MALATE. [Suspect]
     Active Substance: SUNITINIB MALATE
     Indication: PAPILLOMA

REACTIONS (3)
  - Disseminated intravascular coagulation [Recovering/Resolving]
  - Thrombocytopenia [Recovering/Resolving]
  - Liver disorder [Recovering/Resolving]
